FAERS Safety Report 7279593-5 (Version None)
Quarter: 2011Q1

REPORT INFORMATION
  Report Type: 
  Country: None (occurrence: None)
  Receive Date: 20110203
  Receipt Date: 20110203
  Transmission Date: 20110831
  Serious: Yes (Hospitalization)
  Sender: FDA-Public Use
  Company Number: None

PATIENT
  Sex: Female

DRUGS (11)
  1. DILTIAZEM [Concomitant]
  2. I-CAPS [Concomitant]
  3. INDOMETHACIN [Concomitant]
  4. TYLENOL (CAPLET) [Concomitant]
  5. CALCIUM + VITAMIN D [Concomitant]
  6. RANIBIZUMAB [Suspect]
     Indication: MACULAR DEGENERATION
     Dosage: 0.05ML PRN IVT
     Route: 042
     Dates: start: 20101203
  7. RANIBIZUMAB [Suspect]
     Indication: MACULAR DEGENERATION
     Dosage: 0.05ML PRN IVT
     Route: 042
     Dates: start: 20100802
  8. RANIBIZUMAB [Suspect]
     Indication: MACULAR DEGENERATION
     Dosage: 0.05ML PRN IVT
     Route: 042
     Dates: start: 20101104
  9. RANIBIZUMAB [Suspect]
     Indication: MACULAR DEGENERATION
     Dosage: 0.05ML PRN IVT
     Route: 042
     Dates: start: 20100103
  10. RANIBIZUMAB [Suspect]
     Indication: MACULAR DEGENERATION
     Dosage: 0.05ML PRN IVT
     Route: 042
     Dates: start: 20100902
  11. RANIBIZUMAB [Suspect]
     Indication: MACULAR DEGENERATION
     Dosage: 0.05ML PRN IVT
     Route: 042
     Dates: start: 20101004

REACTIONS (1)
  - ARTHRITIS [None]
